FAERS Safety Report 25499113 (Version 1)
Quarter: 2025Q3

REPORT INFORMATION
  Report Type: Spontaneous
  Country: CA (occurrence: CA)
  Receive Date: 20250701
  Receipt Date: 20250701
  Transmission Date: 20251021
  Serious: Yes (Other)
  Sender: PFIZER
  Company Number: CA-PFIZER INC-202500131802

PATIENT
  Age: 46 Year
  Sex: Male
  Weight: 84 kg

DRUGS (3)
  1. ABRILADA [Suspect]
     Active Substance: ADALIMUMAB-AFZB
     Indication: Ankylosing spondylitis
     Route: 058
  2. CELEBREX [Concomitant]
     Active Substance: CELECOXIB
  3. IBUPROFEN [Concomitant]
     Active Substance: IBUPROFEN

REACTIONS (13)
  - Back pain [Recovered/Resolved]
  - Discomfort [Recovered/Resolved]
  - Drug ineffective [Recovered/Resolved]
  - Fatigue [Recovered/Resolved]
  - Gastrointestinal disorder [Recovered/Resolved]
  - Gastrooesophageal reflux disease [Recovered/Resolved]
  - Headache [Recovered/Resolved]
  - Mouth ulceration [Recovered/Resolved]
  - Musculoskeletal stiffness [Recovered/Resolved]
  - Pain [Recovered/Resolved]
  - Pain in extremity [Recovered/Resolved]
  - Poor quality sleep [Recovered/Resolved]
  - Psoriasis [Recovered/Resolved]
